FAERS Safety Report 5169823-8 (Version None)
Quarter: 2006Q4

REPORT INFORMATION
  Report Type: 
  Country: None (occurrence: None)
  Receive Date: 20061212
  Receipt Date: 20061009
  Transmission Date: 20070319
  Serious: Yes (Death, Hospitalization, Other)
  Sender: FDA-Public Use
  Company Number: GB-BRISTOL-MYERS SQUIBB COMPANY-13535026

PATIENT
  Age: 59 Year
  Sex: Female

DRUGS (3)
  1. DASATINIB [Suspect]
     Indication: CHRONIC MYELOID LEUKAEMIA
     Route: 048
     Dates: start: 20060316, end: 20061007
  2. BENDROFLUAZIDE [Concomitant]
     Dates: start: 20010101
  3. AMOXICILLIN [Concomitant]
     Dates: start: 20061001

REACTIONS (4)
  - ARTERIOSCLEROSIS CORONARY ARTERY [None]
  - CARDIAC FAILURE CONGESTIVE [None]
  - INFECTION [None]
  - NEUTROPENIC SEPSIS [None]
